FAERS Safety Report 9248720 (Version 1)
Quarter: 2013Q2

REPORT INFORMATION
  Report Type: Spontaneous
  Country: US (occurrence: None)
  Receive Date: 20130419
  Receipt Date: 20130419
  Transmission Date: 20140414
  Serious: Yes (Hospitalization)
  Sender: FDA-Public Use
  Company Number: None

PATIENT
  Age: 93 Year
  Sex: Male
  Weight: 65.8 kg

DRUGS (2)
  1. DIGOXIN [Suspect]
     Indication: HYPERTENSION
     Route: 048
     Dates: start: 20090731, end: 20130416
  2. METOPROLOL [Suspect]
     Route: 048
     Dates: start: 20060411, end: 20130416

REACTIONS (1)
  - Bradycardia [None]
